FAERS Safety Report 5614505-9 (Version None)
Quarter: 2008Q1

REPORT INFORMATION
  Report Type: 
  Country: None (occurrence: None)
  Receive Date: 20080205
  Receipt Date: 20080129
  Transmission Date: 20080703
  Serious: Yes (Hospitalization, Disabling)
  Sender: FDA-Public Use
  Company Number: CG-MERCK-0801USA05805

PATIENT
  Age: 27 Year
  Sex: Male
  Weight: 47 kg

DRUGS (1)
  1. MECTIZAN [Suspect]
     Indication: PROPHYLAXIS
     Route: 048
     Dates: start: 20071213, end: 20071213

REACTIONS (12)
  - BRADYPHRENIA [None]
  - COMA [None]
  - CONJUNCTIVAL HYPERAEMIA [None]
  - DEHYDRATION [None]
  - DEPRESSED LEVEL OF CONSCIOUSNESS [None]
  - DIARRHOEA [None]
  - ENCEPHALOPATHY [None]
  - KERNIG'S SIGN [None]
  - MUSCULOSKELETAL STIFFNESS [None]
  - PARAPARESIS [None]
  - PYREXIA [None]
  - URINARY INCONTINENCE [None]
